FAERS Safety Report 5403881-8 (Version None)
Quarter: 2007Q3

REPORT INFORMATION
  Report Type: 
  Country: None (occurrence: None)
  Receive Date: 20070802
  Receipt Date: 20070730
  Transmission Date: 20080115
  Serious: Yes (Death)
  Sender: FDA-Public Use
  Company Number: HQWYE712120JUN07

PATIENT
  Sex: Male

DRUGS (6)
  1. AMIODARONE HCL [Suspect]
     Indication: VENTRICULAR TACHYCARDIA
     Route: 048
     Dates: start: 20070502, end: 20070516
  2. AMIODARONE HCL [Suspect]
     Route: 048
     Dates: start: 20070517, end: 20070530
  3. FAMOTIDINE [Concomitant]
     Indication: GASTRIC ULCER
     Route: 048
     Dates: start: 20031229
  4. SUNRYTHM [Concomitant]
     Indication: ATRIAL FIBRILLATION
     Dosage: UNKNOWN
     Route: 048
     Dates: start: 20031229, end: 20070502
  5. WARFARIN SODIUM [Concomitant]
     Indication: ATRIAL FIBRILLATION
     Route: 048
     Dates: start: 20061225, end: 20070516
  6. WARFARIN SODIUM [Concomitant]
     Route: 048
     Dates: start: 20070517

REACTIONS (2)
  - HYPOTHYROIDISM [None]
  - INTERSTITIAL LUNG DISEASE [None]
